FAERS Safety Report 7751167-9 (Version None)
Quarter: 2011Q3

REPORT INFORMATION
  Report Type: 
  Country: None (occurrence: None)
  Receive Date: 20110825
  Receipt Date: 20110621
  Transmission Date: 20111222
  Serious: No
  Sender: FDA-Public Use
  Company Number: 330485

PATIENT
  Age: 51 Year
  Sex: Male

DRUGS (3)
  1. VICTOZA [Suspect]
     Indication: TYPE 2 DIABETES MELLITUS
     Dosage: SUBCUTANEOUS
     Route: 058
     Dates: start: 20110523, end: 20110614
  2. JANUMET [Concomitant]
  3. GLIMEPIRIDE [Concomitant]

REACTIONS (1)
  - DRUG INEFFECTIVE [None]
